FAERS Safety Report 19573229 (Version 1)
Quarter: 2021Q3

REPORT INFORMATION
  Report Type: Spontaneous
  Country: US (occurrence: US)
  Receive Date: 20210717
  Receipt Date: 20210717
  Transmission Date: 20211014
  Serious: Yes (Other)
  Sender: FDA-Public Use
  Company Number: US-AUROBINDO-AUR-APL-2021-030054

PATIENT
  Age: 20 Year
  Sex: Male

DRUGS (10)
  1. ENALAPRIL [Suspect]
     Active Substance: ENALAPRIL
     Indication: CHEYNE-STOKES RESPIRATION
  2. LASIX [Suspect]
     Active Substance: FUROSEMIDE
     Indication: CHEYNE-STOKES RESPIRATION
  3. METOPROLOL. [Suspect]
     Active Substance: METOPROLOL
     Indication: CARDIAC FAILURE CONGESTIVE
     Dosage: UNK
     Route: 065
  4. METOPROLOL. [Suspect]
     Active Substance: METOPROLOL
     Indication: CHEYNE-STOKES RESPIRATION
  5. ENALAPRIL [Suspect]
     Active Substance: ENALAPRIL
     Indication: CARDIAC FAILURE CONGESTIVE
     Dosage: UNK
     Route: 065
  6. LASIX [Suspect]
     Active Substance: FUROSEMIDE
     Indication: CARDIAC FAILURE CONGESTIVE
     Dosage: UNK
     Route: 065
  7. ALDACTONE [Suspect]
     Active Substance: SPIRONOLACTONE
     Indication: CARDIAC FAILURE CONGESTIVE
     Dosage: UNK
     Route: 065
  8. MILRINONE LACTATE. [Suspect]
     Active Substance: MILRINONE LACTATE
     Indication: CHEYNE-STOKES RESPIRATION
  9. MILRINONE LACTATE. [Suspect]
     Active Substance: MILRINONE LACTATE
     Indication: CARDIAC FAILURE CONGESTIVE
     Dosage: UNK
     Route: 065
  10. ALDACTONE [Suspect]
     Active Substance: SPIRONOLACTONE
     Indication: CHEYNE-STOKES RESPIRATION

REACTIONS (1)
  - Drug ineffective [Unknown]
